FAERS Safety Report 7749529-9 (Version None)
Quarter: 2011Q3

REPORT INFORMATION
  Report Type: 
  Country: None (occurrence: None)
  Receive Date: 20110907
  Receipt Date: 20110830
  Transmission Date: 20111222
  Serious: Yes (Hospitalization)
  Sender: FDA-Public Use
  Company Number: 2011149915

PATIENT
  Age: 81 Year
  Sex: Female

DRUGS (9)
  1. ASPIRIN [Concomitant]
  2. ADCAL-D3 (CALCIUM CARBONATE, COLECLACIFEROL) [Concomitant]
  3. ACETAMINOPHEN [Concomitant]
  4. STRONTIUM CHLORIDE (STRONTIUM CHLORIDE) [Concomitant]
  5. FRAGMIN [Suspect]
     Indication: DEEP VEIN THROMBOSIS
     Dosage: 10000 IU, 1X/DAY, SUBCUTANEOUS
     Route: 058
     Dates: start: 20110415, end: 20110709
  6. DIPYRIDAMOLE [Concomitant]
  7. ACETAMINOPHEN [Concomitant]
  8. BENDROFLUMETHIAZIDE (BENDROFLUMETHIAZIDE) [Concomitant]
  9. ATENOLOL [Concomitant]

REACTIONS (3)
  - MOBILITY DECREASED [None]
  - METABOLIC ACIDOSIS [None]
  - LETHARGY [None]
